FAERS Safety Report 21490444 (Version 2)
Quarter: 2023Q1

REPORT INFORMATION
  Report Type: Spontaneous
  Country: US (occurrence: None)
  Receive Date: 20221021
  Receipt Date: 20230117
  Transmission Date: 20230418
  Serious: No
  Sender: FDA-Public Use
  Company Number: US-SUPERNUS Pharmaceuticals, Inc.-SUP202209-002915

PATIENT
  Age: 9 Year
  Sex: Male
  Weight: 26 kg

DRUGS (9)
  1. QELBREE [Suspect]
     Active Substance: VILOXAZINE HYDROCHLORIDE
     Indication: Product used for unknown indication
     Dosage: NOT REPORTED
  2. COUMADIN [Concomitant]
     Active Substance: WARFARIN SODIUM
     Dosage: NOT PROVIDED
  3. CYMBALTA [Concomitant]
     Active Substance: DULOXETINE HYDROCHLORIDE
     Dosage: NOT PROVIDED
  4. RISPERIDONE [Concomitant]
     Active Substance: RISPERIDONE
     Dosage: NOT PROVIDED
  5. DIGOXIN [Concomitant]
     Active Substance: DIGOXIN
     Dosage: NOT PROVIDED
  6. ENALAPRIL [Concomitant]
     Active Substance: ENALAPRIL
     Dosage: NOT PROVIDED
  7. LORATADINE [Concomitant]
     Active Substance: LORATADINE
     Dosage: NOT PROVIDED
  8. FAMOTIDINE [Concomitant]
     Active Substance: FAMOTIDINE
     Dosage: NOT PROVIDED
  9. MUCINEX [Concomitant]
     Active Substance: GUAIFENESIN
     Dosage: NOT PROVIDED

REACTIONS (2)
  - International normalised ratio increased [Unknown]
  - Drug ineffective [Unknown]
